FAERS Safety Report 16941049 (Version 2)
Quarter: 2020Q1

REPORT INFORMATION
  Report Type: Spontaneous
  Country: BW (occurrence: BW)
  Receive Date: 20191021
  Receipt Date: 20200129
  Transmission Date: 20200409
  Serious: No
  Sender: FDA-Public Use
  Company Number: BW-SA-2019SA279310

PATIENT
  Age: 13 Year
  Sex: Female
  Weight: 28.85 kg

DRUGS (2)
  1. CEREZYME [Suspect]
     Active Substance: IMIGLUCERASE
     Dosage: 69.32 IU/KG, QOW
     Route: 041
     Dates: start: 20191007
  2. CEREZYME [Suspect]
     Active Substance: IMIGLUCERASE
     Indication: GAUCHER^S DISEASE TYPE I
     Dosage: 72.72 IU, QOW
     Route: 041
     Dates: start: 201702

REACTIONS (3)
  - Hepatomegaly [Recovered/Resolved]
  - Splenomegaly [Recovering/Resolving]
  - Weight increased [Unknown]
